FAERS Safety Report 6310636-9 (Version None)
Quarter: 2009Q3

REPORT INFORMATION
  Report Type: 
  Country: None (occurrence: None)
  Receive Date: 20090814
  Receipt Date: 20090807
  Transmission Date: 20100115
  Serious: Yes (Hospitalization)
  Sender: FDA-Public Use
  Company Number: US-AMGEN-KDL359475

PATIENT
  Sex: Female
  Weight: 72.6 kg

DRUGS (8)
  1. PROCRIT [Suspect]
     Indication: DRUG USE FOR UNKNOWN INDICATION
     Route: 058
  2. CELLCEPT [Concomitant]
  3. BENICAR [Concomitant]
  4. CLONIDINE [Concomitant]
  5. CALCITRIOL [Concomitant]
  6. ZOCOR [Concomitant]
  7. PLAQUENIL [Concomitant]
  8. PLETAL [Concomitant]

REACTIONS (5)
  - BLOOD CALCIUM DECREASED [None]
  - BLOOD POTASSIUM DECREASED [None]
  - HAEMOGLOBIN DECREASED [None]
  - HYPERTENSION [None]
  - RENAL DISORDER [None]
